FAERS Safety Report 9082832 (Version 2)
Quarter: 2013Q2

REPORT INFORMATION
  Report Type: Spontaneous
  Country: IT (occurrence: IT)
  Receive Date: 20130130
  Receipt Date: 20130405
  Transmission Date: 20140414
  Serious: Yes (Death, Other)
  Sender: FDA-Public Use
  Company Number: PHHY2013IT003520

PATIENT
  Sex: Male

DRUGS (6)
  1. ZOMETA [Suspect]
     Indication: RENAL CANCER STAGE IV
     Dosage: 4 MG, MONTHLY
     Dates: start: 20050718, end: 20060510
  2. SUTENT [Suspect]
     Indication: RENAL CANCER STAGE IV
     Dosage: 25 MG, CYCLIC 1 TABLET PER DAY FOR 4 WEEKS
     Dates: start: 20060601
  3. AUGMENTIN [Concomitant]
     Dosage: UNK UKN, UNK
  4. FLAGYL [Concomitant]
     Dosage: UNK UKN, UNK
  5. CHLORHEXIDINE [Concomitant]
     Dosage: UNK UKN, UNK
  6. CORSODYL [Concomitant]
     Dosage: UNK UKN, UNK

REACTIONS (2)
  - Death [Fatal]
  - Osteonecrosis of jaw [Unknown]
